FAERS Safety Report 10015580 (Version 3)
Quarter: 2014Q3

REPORT INFORMATION
  Report Type: Spontaneous
  Country: US (occurrence: US)
  Receive Date: 20140317
  Receipt Date: 20140717
  Transmission Date: 20150326
  Serious: Yes (Hospitalization)
  Sender: FDA-Public Use
  Company Number: US-BAYER-2014-038461

PATIENT
  Age: 22 Year
  Sex: Female
  Weight: 61.68 kg

DRUGS (2)
  1. ORTHO TRICYCLEN [Concomitant]
  2. MIRENA [Suspect]
     Active Substance: LEVONORGESTREL
     Indication: CONTRACEPTION
     Dosage: 20 MCG/24HR, CONT
     Route: 015
     Dates: start: 20080702, end: 20100302

REACTIONS (7)
  - Emotional distress [None]
  - Procedural pain [None]
  - Medical device discomfort [None]
  - Device dislocation [Recovered/Resolved]
  - Injury [Recovered/Resolved]
  - General physical health deterioration [None]
  - Abdominal pain [Recovered/Resolved]

NARRATIVE: CASE EVENT DATE: 201001
